FAERS Safety Report 9507161 (Version 1)
Quarter: 2013Q1

REPORT INFORMATION
  Report Type: Spontaneous
  Country: US (occurrence: None)
  Receive Date: 20130305
  Receipt Date: 20130305
  Transmission Date: 20140127
  Serious: Yes (Other)
  Sender: FDA-Public Use
  Company Number: 163-21880-12113782

PATIENT
  Age: 53 Year
  Sex: Male
  Weight: 78.02 kg

DRUGS (6)
  1. REVLIMID (LENALIDOMIDE) (25 MILLIGRAM, CAPSULES) [Suspect]
     Indication: PLASMA CELL MYELOMA
     Dosage: 25 MG, 1 IN 1 D, PO
     Route: 048
     Dates: start: 20111001
  2. ASPIRIN (ACETYLSALICYLIC ACID) (TABLETS) [Concomitant]
  3. DILAUDID (HYDROMORPHONE HYDROCHLORIDE) (TABLETS) [Concomitant]
  4. HYDROCORTISONE (HYDROCORTISONE) (UNKNOWN) [Concomitant]
  5. PREVACID (LANSOPRAZOLE) (TABLETS) [Concomitant]
  6. XANAX (ALPRAZOLAM) (TABLETS) [Concomitant]

REACTIONS (10)
  - Cerebrovascular accident [None]
  - Memory impairment [None]
  - Libido decreased [None]
  - Weight fluctuation [None]
  - Rash [None]
  - Constipation [None]
  - Blood potassium decreased [None]
  - Nausea [None]
  - Vomiting [None]
  - Blood testosterone decreased [None]
